FAERS Safety Report 10922767 (Version 1)
Quarter: 2015Q1

REPORT INFORMATION
  Report Type: Spontaneous
  Country: US (occurrence: None)
  Receive Date: 20150313
  Receipt Date: 20150313
  Transmission Date: 20150721
  Serious: Yes (Hospitalization)
  Sender: FDA-Public Use
  Company Number: FK201501193

PATIENT
  Age: 76 Year
  Sex: Female

DRUGS (3)
  1. BEVACIZUMAB (BEVACIZUMAB) (BEVACIZUMAB) [Suspect]
     Active Substance: BEVACIZUMAB
     Indication: ADENOCARCINOMA OF COLON
  2. OXALIPLATIN (MANUFACTURER UNKNOWN) (OXALIPLATIN) (OXALIPLATIN) [Suspect]
     Active Substance: OXALIPLATIN
     Indication: ADENOCARCINOMA OF COLON
  3. CAPECITABINE (CAPECITABINE) (CAPECITABINE) [Concomitant]
     Active Substance: CAPECITABINE

REACTIONS (2)
  - Haemolytic anaemia [None]
  - Disseminated intravascular coagulation [None]
